FAERS Safety Report 4283433-6 (Version None)
Quarter: 2004Q1

REPORT INFORMATION
  Report Type: 
  Country: None (occurrence: None)
  Receive Date: 20040115
  Receipt Date: 20030909
  Transmission Date: 20041129
  Serious: Yes (Death)
  Sender: FDA-Public Use
  Company Number: US-JNJFOC-20030803394

PATIENT
  Age: 66 Year
  Sex: Female

DRUGS (4)
  1. DOXIL [Suspect]
     Indication: CERVIX CARCINOMA
     Dosage: 10 MG
  2. HEPARIN [Concomitant]
  3. ARANESP [Concomitant]
  4. BENADRYL () DIPHENYDRAMINE HYDROCHLORIDE [Concomitant]

REACTIONS (2)
  - MALIGNANT NEOPLASM PROGRESSION [None]
  - PLEURAL EFFUSION [None]
